FAERS Safety Report 14266123 (Version 1)
Quarter: 2017Q4

REPORT INFORMATION
  Report Type: Spontaneous
  Country: FR (occurrence: FR)
  Receive Date: 20171209
  Receipt Date: 20171209
  Transmission Date: 20180321
  Serious: Yes (Hospitalization, Other)
  Sender: FDA-Public Use
  Company Number: FR-MYLANLABS-2017M1076973

PATIENT
  Sex: Female
  Weight: 56 kg

DRUGS (6)
  1. ZOPICLONE [Suspect]
     Active Substance: ZOPICLONE
     Indication: INSOMNIA
     Route: 048
     Dates: start: 20170208, end: 20170707
  2. LEXOMIL ROCHE [Suspect]
     Active Substance: BROMAZEPAM
     Indication: DEPRESSION
     Dosage: 0,25 PONCTUELLEMENT (SI BESOIN)
     Route: 048
  3. MODURETIC 2,5 MG/25 MG, COMPRIM? [Suspect]
     Active Substance: AMILORIDE HYDROCHLORIDE\HYDROCHLOROTHIAZIDE
     Indication: PRODUCT USED FOR UNKNOWN INDICATION
     Dosage: 1 DF, INTERVAL - 1 DAY
     Route: 048
     Dates: end: 20170707
  4. BOLDOFLORINE [Suspect]
     Active Substance: HERBALS\SENNOSIDES
     Indication: PRODUCT USED FOR UNKNOWN INDICATION
     Dosage: 3 DF, INTERVAL -1 DAY
     Route: 048
     Dates: end: 20170707
  5. ZOLPIDEM [Suspect]
     Active Substance: ZOLPIDEM\ZOLPIDEM TARTRATE
     Indication: INSOMNIA
     Route: 048
  6. PRONTALGINE [Suspect]
     Active Substance: ACETAMINOPHEN\AMOBARBITAL\CAFFEINE\CODEINE PHOSPHATE
     Indication: NECK PAIN
     Route: 048

REACTIONS (3)
  - Eczema [Recovered/Resolved]
  - Eczema [Recovered/Resolved]
  - Toxic skin eruption [Recovered/Resolved]

NARRATIVE: CASE EVENT DATE: 2016
